FAERS Safety Report 4320214-9 (Version None)
Quarter: 2004Q1

REPORT INFORMATION
  Report Type: 
  Country: None (occurrence: None)
  Receive Date: 20040317
  Receipt Date: 20040305
  Transmission Date: 20041129
  Serious: Yes (Hospitalization)
  Sender: FDA-Public Use
  Company Number: ZONI001349

PATIENT
  Age: 68 Year
  Sex: Female

DRUGS (6)
  1. EXCEGRAN (ZONISAMIDE) [Suspect]
     Indication: EPILEPSY
     Dosage: 200 MG DAILY ORAL
     Route: 048
     Dates: start: 20031015, end: 20031029
  2. VALPROATE SODIUM [Suspect]
     Indication: CONVULSION
     Dosage: 800 MG DAILY ORAL
     Route: 048
     Dates: start: 20030910, end: 20031015
  3. TOWARAT (NIFEDIPINE) [Concomitant]
  4. DEPAS (ETIZOLAM) [Concomitant]
  5. ALLORINE (ALLOPURINOL) [Concomitant]
  6. METHYCOBAL (MECOBALAMIN) [Concomitant]

REACTIONS (2)
  - HAEMODIALYSIS [None]
  - HEPATITIS FULMINANT [None]
